FAERS Safety Report 7047102-1 (Version None)
Quarter: 2010Q4

REPORT INFORMATION
  Report Type: 
  Country: None (occurrence: None)
  Receive Date: 20101015
  Receipt Date: 20101006
  Transmission Date: 20110411
  Serious: Yes (Hospitalization)
  Sender: FDA-Public Use
  Company Number: US-JNJFOC-20101002516

PATIENT
  Sex: Female
  Weight: 42.2 kg

DRUGS (3)
  1. REMICADE [Suspect]
     Indication: COLITIS
     Route: 042
  2. CIMZIA [Suspect]
     Indication: COLITIS
  3. PREDNISONE [Concomitant]

REACTIONS (1)
  - COLITIS [None]
